FAERS Safety Report 8534838-6 (Version None)
Quarter: 2012Q3

REPORT INFORMATION
  Report Type: 
  Country: None (occurrence: None)
  Receive Date: 20120724
  Receipt Date: 20120711
  Transmission Date: 20120928
  Serious: Yes (Death)
  Sender: FDA-Public Use
  Company Number: US-WATSON-2012-11469

PATIENT
  Sex: Male
  Weight: 88 kg

DRUGS (1)
  1. RAPAFLO [Suspect]
     Indication: BLADDER CANCER
     Dosage: 8 MG, DAILY
     Route: 048

REACTIONS (1)
  - BLADDER CANCER [None]
